FAERS Safety Report 9041367 (Version 1)
Quarter: 2013Q1

REPORT INFORMATION
  Report Type: Report from Study
  Country: US (occurrence: US)
  Receive Date: 20130129
  Receipt Date: 20130129
  Transmission Date: 20140127
  Serious: No
  Sender: FDA-Public Use
  Company Number: US-ABBOTT-12P-163-0901330-00

PATIENT
  Age: 63 Year
  Sex: Female
  Weight: 56.75 kg

DRUGS (7)
  1. HUMIRA 40 MG/0.8 ML PEN [Suspect]
     Indication: CROHN^S DISEASE
     Dates: start: 201109, end: 201112
  2. INDERALL [Concomitant]
     Indication: HYPERTENSION
  3. ZOLOFT [Concomitant]
     Indication: DEPRESSION
  4. PENTASA [Concomitant]
     Indication: CROHN^S DISEASE
  5. VITAMIN D [Concomitant]
     Indication: VITAMIN SUPPLEMENTATION
  6. CALCIUM [Concomitant]
     Indication: MINERAL SUPPLEMENTATION
  7. ASPIRIN [Concomitant]
     Indication: CARDIAC DISORDER

REACTIONS (2)
  - Sinusitis [Recovered/Resolved]
  - Bronchitis [Recovered/Resolved]
